FAERS Safety Report 21692684 (Version 2)
Quarter: 2024Q3

REPORT INFORMATION
  Report Type: Spontaneous
  Country: GB (occurrence: GB)
  Receive Date: 20221207
  Receipt Date: 20240712
  Transmission Date: 20241016
  Serious: No
  Sender: ALKEM
  Company Number: None

PATIENT
  Age: 38 Year
  Sex: Female

DRUGS (11)
  1. TOLVAPTAN [Suspect]
     Active Substance: TOLVAPTAN
     Indication: Congenital cystic kidney disease
     Dosage: 45 MILLIGRAM TABLET (UNCOATED)
     Route: 048
     Dates: start: 20171031
  2. TOLVAPTAN [Suspect]
     Active Substance: TOLVAPTAN
     Dosage: 15 MILLIGRAM TABLET (UNCOATED)
     Route: 048
     Dates: start: 20171031
  3. TOLVAPTAN [Suspect]
     Active Substance: TOLVAPTAN
     Dosage: 60 MILLIGRAM TABLET (UNCOATED)
     Route: 048
     Dates: start: 20171128
  4. TOLVAPTAN [Suspect]
     Active Substance: TOLVAPTAN
     Dosage: 30 MILLIGRAM TABLET (UNCOATED)
     Route: 048
     Dates: start: 20171128
  5. TOLVAPTAN [Suspect]
     Active Substance: TOLVAPTAN
     Dosage: 90 MILLIGRAM TABLET (UNCOATED)
     Route: 048
     Dates: start: 20171230
  6. TOLVAPTAN [Suspect]
     Active Substance: TOLVAPTAN
     Dosage: 30 MILLIGRAM TABLET (UNCOATED)
     Route: 048
     Dates: start: 20171230
  7. RAMIPRIL [Concomitant]
     Active Substance: RAMIPRIL
     Indication: Product used for unknown indication
     Dosage: 10 MILLIGRAM, QD
     Route: 048
     Dates: start: 20170926
  8. Betnesol [Concomitant]
     Indication: Product used for unknown indication
     Dosage: 1 DROP, 1 GTT (SIX HOURLY)
     Route: 065
     Dates: start: 20181203, end: 20181210
  9. OFLOXACIN [Concomitant]
     Active Substance: OFLOXACIN
     Indication: Product used for unknown indication
     Dosage: 1 DROP, 1 GTT, Q1HR (EVERY HOUR)
     Route: 065
     Dates: start: 20181123, end: 20181126
  10. OFLOXACIN [Concomitant]
     Active Substance: OFLOXACIN
     Dosage: 1 DROP, 1 GTT, Q2HR (2 HOURLY)
     Route: 065
     Dates: start: 20181126, end: 20181130
  11. OFLOXACIN [Concomitant]
     Active Substance: OFLOXACIN
     Dosage: 1 DROP, 1 GTT (SIX HOURLY)
     Route: 065
     Dates: start: 20181130, end: 20181210

REACTIONS (1)
  - Tonsillitis [Recovered/Resolved]

NARRATIVE: CASE EVENT DATE: 20181217
